FAERS Safety Report 12286273 (Version 1)
Quarter: 2016Q2

REPORT INFORMATION
  Report Type: Spontaneous
  Country: US (occurrence: US)
  Receive Date: 20160420
  Receipt Date: 20160420
  Transmission Date: 20160815
  Serious: No
  Sender: FDA-Public Use
  Company Number: US-PFIZER INC-2016106821

PATIENT
  Age: 54 Year
  Sex: Female
  Weight: 38.55 kg

DRUGS (2)
  1. NEURONTIN [Suspect]
     Active Substance: GABAPENTIN
     Indication: NEUROPATHY PERIPHERAL
     Dosage: 1800 MG, DAILY
     Route: 048
     Dates: start: 2003, end: 2008
  2. GABAPENTIN. [Concomitant]
     Active Substance: GABAPENTIN
     Dosage: UNK

REACTIONS (2)
  - White blood cell count increased [Unknown]
  - Product use issue [Unknown]

NARRATIVE: CASE EVENT DATE: 2003
